FAERS Safety Report 9377372 (Version 1)
Quarter: 2013Q3

REPORT INFORMATION
  Report Type: Report from Study
  Country: AT (occurrence: AT)
  Receive Date: 20130701
  Receipt Date: 20130701
  Transmission Date: 20140515
  Serious: Yes (Other)
  Sender: FDA-Public Use
  Company Number: AT-VERTEX PHARMACEUTICALS INC-2013-007453

PATIENT
  Age: 52 Year
  Sex: Female

DRUGS (3)
  1. INCIVO [Suspect]
     Indication: HEPATITIS C
     Dosage: 375 MG (2 TABLETS 3 TIMES A DAY)
     Route: 048
  2. PEGASYS [Concomitant]
     Indication: PRODUCT USED FOR UNKNOWN INDICATION
     Dosage: DOSAGE FORM: UNSPECIFIED
     Route: 058
  3. COPEGUS [Concomitant]
     Indication: PRODUCT USED FOR UNKNOWN INDICATION
     Dosage: DOSAGE FORM: UNSPECIFIED
     Route: 048

REACTIONS (12)
  - Diarrhoea haemorrhagic [Recovered/Resolved]
  - Depressed mood [Recovered/Resolved]
  - Proctitis [Recovered/Resolved]
  - Pyrexia [Recovered/Resolved]
  - Arthralgia [Recovered/Resolved]
  - Decreased appetite [Unknown]
  - Pancytopenia [Unknown]
  - Weight decreased [Unknown]
  - Vomiting [Unknown]
  - Pruritus [Recovered/Resolved]
  - Nausea [Unknown]
  - Rash [Recovered/Resolved]
